FAERS Safety Report 4870324-2 (Version None)
Quarter: 2006Q1

REPORT INFORMATION
  Report Type: 
  Country: None (occurrence: None)
  Receive Date: 20060103
  Receipt Date: 20051222
  Transmission Date: 20060701
  Serious: Yes (Hospitalization, Other)
  Sender: FDA-Public Use
  Company Number: KR-JNJFOC-20051203187

PATIENT
  Sex: Female
  Weight: 52.8 kg

DRUGS (13)
  1. BLINDED; INFLIXIMAB, RECOMBINANT [Suspect]
     Route: 042
  2. BLINDED; INFLIXIMAB, RECOMBINANT [Suspect]
     Route: 042
  3. BLINDED; INFLIXIMAB, RECOMBINANT [Suspect]
     Indication: RHEUMATOID ARTHRITIS
     Route: 042
  4. PLACEBO [Suspect]
     Route: 042
  5. PLACEBO [Suspect]
     Route: 042
  6. PLACEBO [Suspect]
     Indication: RHEUMATOID ARTHRITIS
     Route: 042
  7. FOLIC ACID [Concomitant]
     Indication: RHEUMATOID ARTHRITIS
     Route: 048
  8. SOLONDO [Concomitant]
     Indication: RHEUMATOID ARTHRITIS
     Route: 048
  9. RECOMIDE [Concomitant]
     Indication: RHEUMATOID ARTHRITIS
     Route: 048
  10. TYLENOL ER [Concomitant]
     Indication: RHEUMATOID ARTHRITIS
     Route: 048
  11. GANATON [Concomitant]
     Indication: RHEUMATOID ARTHRITIS
     Route: 048
  12. MOBIC [Concomitant]
     Indication: RHEUMATOID ARTHRITIS
     Route: 048
  13. METHOTREXATE [Concomitant]
     Indication: RHEUMATOID ARTHRITIS
     Route: 048

REACTIONS (1)
  - FIBROCYSTIC BREAST DISEASE [None]
